FAERS Safety Report 10065862 (Version 2)
Quarter: 2014Q2

REPORT INFORMATION
  Report Type: Spontaneous
  Country: US (occurrence: US)
  Receive Date: 20140408
  Receipt Date: 20140408
  Transmission Date: 20141212
  Serious: No
  Sender: FDA-Public Use
  Company Number: US-ASTELLAS-2014US002472

PATIENT
  Age: 85 Year
  Sex: Male

DRUGS (3)
  1. MYRBETRIQ [Suspect]
     Indication: INCONTINENCE
     Dosage: 25 MG/DAY, DAILY
     Route: 048
     Dates: start: 2014
  2. MYRBETRIQ [Interacting]
     Dosage: TWO 24MG TABLETS PER NIGHT
     Route: 048
  3. DIGOXIN [Interacting]
     Indication: PRODUCT USED FOR UNKNOWN INDICATION
     Dosage: 0.125 MG, UNKNOWN/D
     Route: 065

REACTIONS (9)
  - Drug ineffective [Unknown]
  - Drug interaction [Unknown]
  - Cardioactive drug level decreased [Unknown]
  - Pain [Unknown]
  - Malaise [Unknown]
  - Nocturia [Unknown]
  - Bladder pain [Unknown]
  - Fatigue [Unknown]
  - Abdominal discomfort [Unknown]
